FAERS Safety Report 9120695 (Version 3)
Quarter: 2013Q1

REPORT INFORMATION
  Report Type: Spontaneous
  Country: JP (occurrence: JP)
  Receive Date: 20130226
  Receipt Date: 20130329
  Transmission Date: 20140127
  Serious: Yes (Other)
  Sender: FDA-Public Use
  Company Number: JP-PFIZER INC-2013064220

PATIENT
  Age: 70 Year
  Sex: Male

DRUGS (2)
  1. XALATAN [Suspect]
     Indication: GLAUCOMA
     Dosage: 1 GTT IN RIGHT EYE, 1X/DAY
     Route: 047
     Dates: start: 201202
  2. ODOMEL [Concomitant]
     Route: 047

REACTIONS (3)
  - Treatment noncompliance [Unknown]
  - Expired drug administered [Recovered/Resolved]
  - Intraocular pressure increased [Recovered/Resolved]
